FAERS Safety Report 9310284 (Version 1)
Quarter: 2013Q2

REPORT INFORMATION
  Report Type: Report from Study
  Country: US (occurrence: US)
  Receive Date: 20130527
  Receipt Date: 20130527
  Transmission Date: 20140414
  Serious: Yes (Death)
  Sender: FDA-Public Use
  Company Number: PHEH2013US011530

PATIENT
  Sex: Male

DRUGS (1)
  1. TOBI [Suspect]
     Dosage: 300 MG, BID (300MG/5ML, 1 VIAL)
     Dates: start: 20130206

REACTIONS (1)
  - Death [Fatal]
